FAERS Safety Report 7897071-7 (Version None)
Quarter: 2011Q4

REPORT INFORMATION
  Report Type: 
  Country: None (occurrence: None)
  Receive Date: 20111107
  Receipt Date: 20111025
  Transmission Date: 20120403
  Serious: Yes (Hospitalization)
  Sender: FDA-Public Use
  Company Number: US-JNJFOC-20111012496

PATIENT
  Sex: Female

DRUGS (6)
  1. CELEXA [Concomitant]
     Indication: PRODUCT USED FOR UNKNOWN INDICATION
     Route: 065
  2. BENZTROPINE MESYLATE [Suspect]
     Indication: TARDIVE DYSKINESIA
     Route: 065
  3. BENADRYL [Suspect]
     Indication: TARDIVE DYSKINESIA
     Route: 042
     Dates: start: 20110205
  4. PROCHLORPERAZINE [Suspect]
     Indication: PELVIC PAIN
     Route: 042
     Dates: start: 20110205, end: 20110205
  5. HYDROMORPHONE HCL [Suspect]
     Indication: PELVIC PAIN
     Route: 042
     Dates: start: 20110205
  6. BENADRYL [Suspect]
     Route: 042

REACTIONS (31)
  - FACE OEDEMA [None]
  - TRISMUS [None]
  - ABASIA [None]
  - WEIGHT DECREASED [None]
  - EYE SWELLING [None]
  - APHASIA [None]
  - ASTHENIA [None]
  - CYST [None]
  - SWELLING FACE [None]
  - MUSCLE SPASMS [None]
  - TACHYCARDIA [None]
  - DYSTONIA [None]
  - CONTUSION [None]
  - DEPRESSED LEVEL OF CONSCIOUSNESS [None]
  - INTRACRANIAL HYPOTENSION [None]
  - MENTAL RETARDATION [None]
  - MUSCLE TWITCHING [None]
  - MUSCLE DISORDER [None]
  - DISSOCIATIVE DISORDER [None]
  - RESPIRATORY RATE DECREASED [None]
  - PSYCHOTIC DISORDER [None]
  - ANGINA PECTORIS [None]
  - BACK INJURY [None]
  - BRUXISM [None]
  - ACTIVITIES OF DAILY LIVING IMPAIRED [None]
  - PROTRUSION TONGUE [None]
  - MUSCLE CONTRACTIONS INVOLUNTARY [None]
  - DELUSION [None]
  - HYPERSOMNIA [None]
  - SPINAL FUSION SURGERY [None]
  - INTERVERTEBRAL DISC PROTRUSION [None]
